APPROVED DRUG PRODUCT: KETOROLAC TROMETHAMINE
Active Ingredient: KETOROLAC TROMETHAMINE
Strength: 15MG/ML
Dosage Form/Route: INJECTABLE;INJECTION
Application: A078737 | Product #001
Applicant: SUN PHARMACEUTICAL INDUSTRIES LTD
Approved: Oct 6, 2008 | RLD: No | RS: No | Type: DISCN